FAERS Safety Report 5340499-X (Version None)
Quarter: 2007Q2

REPORT INFORMATION
  Report Type: 
  Country: None (occurrence: None)
  Receive Date: 20070531
  Receipt Date: 20070522
  Transmission Date: 20071010
  Serious: Yes (Other)
  Sender: FDA-Public Use
  Company Number: BR-PFIZER INC-2007042025

PATIENT
  Sex: Female

DRUGS (8)
  1. CELEBRA [Suspect]
     Indication: PAIN
     Route: 048
  2. BEXTRA [Suspect]
     Indication: OSTEOARTHRITIS
     Dates: start: 20030101
  3. BEXTRA [Suspect]
     Indication: INTERVERTEBRAL DISC PROTRUSION
  4. VIOXX [Suspect]
     Indication: OSTEOARTHRITIS
  5. VIOXX [Suspect]
     Indication: INTERVERTEBRAL DISC PROTRUSION
  6. AMLODIPINE [Concomitant]
     Indication: HYPERTENSION
     Route: 048
  7. RIVOTRIL [Concomitant]
     Route: 048
  8. ALL OTHER THERAPEUTIC PRODUCTS [Concomitant]
     Indication: ARTHROPATHY

REACTIONS (4)
  - ABDOMINAL PAIN UPPER [None]
  - ARTHROPATHY [None]
  - MEMORY IMPAIRMENT [None]
  - PAIN [None]
